FAERS Safety Report 19772572 (Version 3)
Quarter: 2021Q3

REPORT INFORMATION
  Report Type: Spontaneous
  Country: US (occurrence: US)
  Receive Date: 20210831
  Receipt Date: 20210930
  Transmission Date: 20211014
  Serious: No
  Sender: FDA-Public Use
  Company Number: US-SA-2021SA286876

PATIENT
  Age: 57 Year
  Sex: Female

DRUGS (1)
  1. DUPIXENT [Suspect]
     Active Substance: DUPILUMAB
     Dosage: 200 MG
     Route: 058

REACTIONS (5)
  - Injection site pain [Recovered/Resolved]
  - Injection site pruritus [Unknown]
  - Injection site exfoliation [Unknown]
  - Injection site scar [Unknown]
  - Herpes zoster [Unknown]

NARRATIVE: CASE EVENT DATE: 202107
